FAERS Safety Report 20922182 (Version 2)
Quarter: 2024Q3

REPORT INFORMATION
  Report Type: Spontaneous
  Country: DE (occurrence: DE)
  Receive Date: 20220607
  Receipt Date: 20240926
  Transmission Date: 20241016
  Serious: Yes (Other)
  Sender: ALKEM
  Company Number: DE-ALKEM LABORATORIES LIMITED-DE-ALKEM-2022-05121

PATIENT
  Age: 68 Year
  Sex: Female

DRUGS (1)
  1. CINACALCET [Suspect]
     Active Substance: CINACALCET
     Indication: Hyperparathyroidism primary
     Dosage: UNK
     Route: 065

REACTIONS (2)
  - Parathyroid tumour benign [Unknown]
  - Drug intolerance [Unknown]
